FAERS Safety Report 4494382-2 (Version None)
Quarter: 2004Q4

REPORT INFORMATION
  Report Type: 
  Country: None (occurrence: None)
  Receive Date: 20041105
  Receipt Date: 20041104
  Transmission Date: 20050328
  Serious: Yes (Life-Threatening, Hospitalization)
  Sender: FDA-Public Use
  Company Number: PHRM2004FR03264

PATIENT
  Age: 51 Year
  Sex: Male
  Weight: 76 kg

DRUGS (1)
  1. TEGRETOL [Suspect]
     Indication: EPILEPSY
     Dosage: 1 DF, BID
     Route: 048
     Dates: start: 20040907, end: 20041010

REACTIONS (9)
  - DERMATITIS EXFOLIATIVE [None]
  - GENERALISED OEDEMA [None]
  - HEPATOCELLULAR DAMAGE [None]
  - INTUBATION [None]
  - NIKOLSKY'S SIGN [None]
  - RASH PUSTULAR [None]
  - SEDATION [None]
  - STAPHYLOCOCCAL SEPSIS [None]
  - TOXIC EPIDERMAL NECROLYSIS [None]
